FAERS Safety Report 15798630 (Version 3)
Quarter: 2020Q1

REPORT INFORMATION
  Report Type: Spontaneous
  Country: US (occurrence: US)
  Receive Date: 20190108
  Receipt Date: 20200313
  Transmission Date: 20200409
  Serious: Yes (Other)
  Sender: FDA-Public Use
  Company Number: US-JNJFOC-20190102345

PATIENT
  Age: 65 Year
  Sex: Female
  Weight: 66.28 kg

DRUGS (3)
  1. XARELTO [Suspect]
     Active Substance: RIVAROXABAN
     Indication: PULMONARY THROMBOSIS
  2. XARELTO [Suspect]
     Active Substance: RIVAROXABAN
     Indication: DEEP VEIN THROMBOSIS
     Dosage: ANOTHER BATCH 18GG484 OR 1866484 WITH EXPIRY DATE MAR-2021
     Route: 048
     Dates: start: 201805, end: 20190102
  3. XARELTO [Suspect]
     Active Substance: RIVAROXABAN
     Indication: PULMONARY EMBOLISM

REACTIONS (4)
  - Scar [Unknown]
  - Renal stone removal [Unknown]
  - Pain [Not Recovered/Not Resolved]
  - Vena cava filter removal [Unknown]

NARRATIVE: CASE EVENT DATE: 20181224
